FAERS Safety Report 17131711 (Version 1)
Quarter: 2019Q4

REPORT INFORMATION
  Report Type: Spontaneous
  Country: US (occurrence: US)
  Receive Date: 20191209
  Receipt Date: 20191209
  Transmission Date: 20200122
  Serious: No
  Sender: FDA-Public Use
  Company Number: US-UCBSA-2016043535

PATIENT
  Age: 50 Year
  Sex: Female

DRUGS (1)
  1. CIMZIA [Suspect]
     Active Substance: CERTOLIZUMAB PEGOL
     Indication: PRODUCT USED FOR UNKNOWN INDICATION
     Dosage: 2X200MG/ML

REACTIONS (8)
  - Pain [Unknown]
  - Movement disorder [Unknown]
  - Nervousness [Unknown]
  - Ear pain [Unknown]
  - Heart rate increased [Unknown]
  - Hypertension [Unknown]
  - Hypoaesthesia [Unknown]
  - Joint swelling [Unknown]

NARRATIVE: CASE EVENT DATE: 20161110
